FAERS Safety Report 5471474-2 (Version None)
Quarter: 2007Q3

REPORT INFORMATION
  Report Type: 
  Country: None (occurrence: None)
  Receive Date: 20070928
  Receipt Date: 20061110
  Transmission Date: 20080115
  Serious: No
  Sender: FDA-Public Use
  Company Number: US-BRISTOL-MYERS SQUIBB COMPANY-13574603

PATIENT
  Age: 72 Year
  Sex: Male
  Weight: 89 kg

DRUGS (2)
  1. DEFINITY [Suspect]
     Indication: MITRAL VALVE INCOMPETENCE
     Route: 042
  2. COUMADIN [Concomitant]

REACTIONS (1)
  - BACK PAIN [None]
